FAERS Safety Report 13182501 (Version 2)
Quarter: 2017Q2

REPORT INFORMATION
  Report Type: Spontaneous
  Country: US (occurrence: US)
  Receive Date: 20170202
  Receipt Date: 20170518
  Transmission Date: 20170830
  Serious: No
  Sender: FDA-Public Use
  Company Number: US-TEVA-732256ACC

PATIENT
  Age: 59 Year
  Sex: Female

DRUGS (6)
  1. LUTEIN [Concomitant]
     Active Substance: LUTEIN
  2. FEXOFENADINE 180 MG [Concomitant]
     Active Substance: FEXOFENADINE\FEXOFENADINE HYDROCHLORIDE
  3. CALCIUM [Concomitant]
     Active Substance: CALCIUM
  4. QNASL [Suspect]
     Active Substance: BECLOMETHASONE DIPROPIONATE
     Route: 065
  5. VITAMIN D 50000 [Concomitant]
  6. ALENDRONATE 75 MG [Concomitant]

REACTIONS (2)
  - Epistaxis [Unknown]
  - Sinusitis [Unknown]

NARRATIVE: CASE EVENT DATE: 20120725
